FAERS Safety Report 8553787-0 (Version None)
Quarter: 2012Q3

REPORT INFORMATION
  Report Type: 
  Country: None (occurrence: None)
  Receive Date: 20120731
  Receipt Date: 20120727
  Transmission Date: 20120928
  Serious: Yes (Hospitalization)
  Sender: FDA-Public Use
  Company Number: BR-B.I. PHARMACEUTICALS,INC./RIDGEFIELD-2012-BR-00852BR

PATIENT
  Sex: Female

DRUGS (1)
  1. ATROVENT [Suspect]
     Indication: ABDOMINAL PAIN UPPER
     Dosage: 0.125 MG
     Route: 048
     Dates: start: 20120726, end: 20120726

REACTIONS (1)
  - WRONG DRUG ADMINISTERED [None]
